FAERS Safety Report 4841397-8 (Version None)
Quarter: 2005Q4

REPORT INFORMATION
  Report Type: 
  Country: None (occurrence: None)
  Receive Date: 20051130
  Receipt Date: 20051004
  Transmission Date: 20060501
  Serious: Yes (Hospitalization)
  Sender: FDA-Public Use
  Company Number: US-MERCK-0510USA03103

PATIENT
  Age: 61 Year
  Sex: Female
  Weight: 61 kg

DRUGS (24)
  1. VIOXX [Suspect]
     Indication: ARTHRITIS
     Route: 048
     Dates: start: 20010628, end: 20040930
  2. VERAPAMIL HYDROCHLORIDE [Concomitant]
     Route: 065
  3. [THERAPY UNSPECIFIED] [Concomitant]
     Route: 065
  4. PREMPRO [Concomitant]
     Route: 065
  5. PENICILLIN V POTASSIUM [Concomitant]
     Route: 065
  6. PIROXICAM [Concomitant]
     Route: 065
  7. FLONASE [Concomitant]
     Route: 065
  8. CEPHALEXIN [Concomitant]
     Route: 065
  9. GUAIFENEX PSE [Concomitant]
     Route: 065
  10. METOPROLOL TARTRATE [Concomitant]
     Route: 065
  11. IBUPROFEN [Concomitant]
     Route: 065
  12. CYCLOBENZAPRINE HYDROCHLORIDE [Concomitant]
     Route: 065
  13. AMOXICILLIN [Concomitant]
     Route: 065
  14. NITROGLYCERIN [Concomitant]
     Route: 065
  15. AZITHROMYCIN [Concomitant]
     Route: 065
  16. RAMIPRIL [Concomitant]
     Route: 065
  17. ISOSORBIDE MONONITRATE [Concomitant]
     Route: 065
  18. CLOPIDOGREL BISULFATE [Concomitant]
     Route: 065
  19. METAXALONE [Concomitant]
     Route: 065
  20. HYDROCODONE BITARTRATE [Concomitant]
     Route: 065
  21. ZOCOR [Concomitant]
     Route: 065
  22. BEXTRA [Concomitant]
     Route: 065
  23. PSEUDOEPHEDRINE HYDROCHLORIDE [Concomitant]
     Route: 065
  24. PROPRANOLOL HYDROCHLORIDE [Concomitant]
     Route: 065

REACTIONS (4)
  - ANGINA PECTORIS [None]
  - HYPERTENSION [None]
  - MYOCARDIAL INFARCTION [None]
  - SPINAL OSTEOARTHRITIS [None]
